FAERS Safety Report 24375768 (Version 1)
Quarter: 2024Q3

REPORT INFORMATION
  Report Type: Report from Study
  Country: US (occurrence: US)
  Receive Date: 20240928
  Receipt Date: 20240928
  Transmission Date: 20241017
  Serious: Yes (Death)
  Sender: JOHNSON AND JOHNSON
  Company Number: US-JNJFOC-20240960259

PATIENT
  Age: 71 Year
  Sex: Male

DRUGS (1)
  1. CILTACABTAGENE AUTOLEUCEL [Suspect]
     Active Substance: CILTACABTAGENE AUTOLEUCEL
     Indication: Plasma cell myeloma
     Dosage: 49.2*10^6 CART CELLS
     Route: 042
     Dates: start: 2023

REACTIONS (4)
  - Acute respiratory failure [Fatal]
  - Atrioventricular block complete [Fatal]
  - Bacterial infection [Fatal]
  - Plasma cell myeloma [Fatal]
